FAERS Safety Report 18997741 (Version 1)
Quarter: 2021Q1

REPORT INFORMATION
  Report Type: Spontaneous
  Country: US (occurrence: US)
  Receive Date: 20210311
  Receipt Date: 20210311
  Transmission Date: 20210420
  Serious: Yes (Hospitalization, Other)
  Sender: FDA-Public Use
  Company Number: US-ASTRAZENECA-2021A107563

PATIENT
  Age: 25911 Day
  Sex: Male
  Weight: 96.6 kg

DRUGS (75)
  1. NEXIUM [Suspect]
     Active Substance: ESOMEPRAZOLE MAGNESIUM
     Indication: GASTROOESOPHAGEAL REFLUX DISEASE
     Route: 048
  2. PRILOSEC [Suspect]
     Active Substance: OMEPRAZOLE MAGNESIUM
     Indication: GASTROOESOPHAGEAL REFLUX DISEASE
     Route: 048
     Dates: start: 2017
  3. HYDRALAZINE [Concomitant]
     Active Substance: HYDRALAZINE HYDROCHLORIDE
     Indication: CARDIAC DISORDER
     Dates: start: 20130215, end: 20140216
  4. FUROSEMIDE. [Concomitant]
     Active Substance: FUROSEMIDE
     Dates: start: 20121012, end: 20131205
  5. CIPROFLOXACIN. [Concomitant]
     Active Substance: CIPROFLOXACIN
     Dates: start: 20130215, end: 20130317
  6. TUMS [Concomitant]
     Active Substance: CALCIUM CARBONATE
     Dates: start: 20150813, end: 20150912
  7. FEBUXOSTAT. [Concomitant]
     Active Substance: FEBUXOSTAT
     Dates: start: 20130215, end: 20130317
  8. PREDNISONE. [Concomitant]
     Active Substance: PREDNISONE
     Dates: start: 20130215, end: 20130317
  9. LEVOFLOXACIN. [Concomitant]
     Active Substance: LEVOFLOXACIN
     Dates: start: 20160216, end: 20160317
  10. ISOSORBIDE DINITRATE. [Concomitant]
     Active Substance: ISOSORBIDE DINITRATE
     Dates: start: 20150206, end: 20150308
  11. POTASSIUM CHLORIDE. [Concomitant]
     Active Substance: POTASSIUM CHLORIDE
     Dates: start: 20150206, end: 20150308
  12. FERROUS GLUCONATE [Concomitant]
     Active Substance: FERROUS GLUCONATE
     Dates: start: 20130215, end: 20130317
  13. FUROSEMIDE. [Concomitant]
     Active Substance: FUROSEMIDE
     Dates: start: 20121017, end: 20160814
  14. CIPROFLOXACIN. [Concomitant]
     Active Substance: CIPROFLOXACIN
     Dates: start: 20150206, end: 20150308
  15. TAMSULOSIN [Concomitant]
     Active Substance: TAMSULOSIN
     Dates: start: 20150206, end: 20150308
  16. POTASSIUM CHLORIDE. [Concomitant]
     Active Substance: POTASSIUM CHLORIDE
     Dates: start: 20150813, end: 20150912
  17. ATORVASTATIN [Concomitant]
     Active Substance: ATORVASTATIN
     Dates: start: 20150813, end: 20150912
  18. COLCHICINE. [Concomitant]
     Active Substance: COLCHICINE
     Dates: start: 20150813, end: 20150912
  19. WARFARIN [Concomitant]
     Active Substance: WARFARIN
     Dates: start: 20150206, end: 20150308
  20. PREVACID 24 HR [Suspect]
     Active Substance: LANSOPRAZOLE
     Indication: GASTROOESOPHAGEAL REFLUX DISEASE
     Route: 065
  21. FUROSEMIDE. [Concomitant]
     Active Substance: FUROSEMIDE
     Dates: start: 20161019, end: 201710
  22. HYDROCHLOROTHIAZIDE. [Concomitant]
     Active Substance: HYDROCHLOROTHIAZIDE
     Dates: start: 20100412, end: 20131013
  23. TUMS [Concomitant]
     Active Substance: CALCIUM CARBONATE
     Dates: start: 20130215, end: 20130317
  24. FEBUXOSTAT. [Concomitant]
     Active Substance: FEBUXOSTAT
     Dates: start: 20150206, end: 20150308
  25. CARVEDILOL. [Concomitant]
     Active Substance: CARVEDILOL
     Dates: start: 20130215, end: 20130317
  26. DICLOXACILLIN [Concomitant]
     Active Substance: DICLOXACILLIN
     Dates: start: 20150206, end: 20150308
  27. GENTAMICIN. [Concomitant]
     Active Substance: GENTAMICIN
     Dates: start: 20150813, end: 20150912
  28. GENTAMICIN. [Concomitant]
     Active Substance: GENTAMICIN
     Dates: start: 20130215, end: 20130317
  29. MITOMYCIN. [Concomitant]
     Active Substance: MITOMYCIN
     Dates: start: 20150206, end: 20150308
  30. MITOMYCIN. [Concomitant]
     Active Substance: MITOMYCIN
     Dates: start: 20150813, end: 20150912
  31. NITROFURANTOIN. [Concomitant]
     Active Substance: NITROFURANTOIN
     Dates: start: 20130215, end: 20130317
  32. WARFARIN [Concomitant]
     Active Substance: WARFARIN
     Dates: start: 20150813, end: 20150912
  33. PRILOSEC [Suspect]
     Active Substance: OMEPRAZOLE MAGNESIUM
     Indication: GASTROOESOPHAGEAL REFLUX DISEASE
     Dosage: GENERIC
     Route: 065
     Dates: start: 2009
  34. DEXILANT [Suspect]
     Active Substance: DEXLANSOPRAZOLE
     Indication: GASTROOESOPHAGEAL REFLUX DISEASE
     Route: 065
  35. PREVACID [Suspect]
     Active Substance: LANSOPRAZOLE
     Indication: GASTROOESOPHAGEAL REFLUX DISEASE
     Route: 065
  36. ZEGERID [Suspect]
     Active Substance: OMEPRAZOLE\SODIUM BICARBONATE
     Indication: GASTROOESOPHAGEAL REFLUX DISEASE
     Route: 065
  37. DOXYCYCLINE. [Concomitant]
     Active Substance: DOXYCYCLINE
     Dates: start: 20160502, end: 20160601
  38. ALLOPURINOL. [Concomitant]
     Active Substance: ALLOPURINOL
     Dates: start: 20100412, end: 20130324
  39. TAMSULOSIN [Concomitant]
     Active Substance: TAMSULOSIN
     Dates: start: 20130215, end: 20130317
  40. CARVEDILOL. [Concomitant]
     Active Substance: CARVEDILOL
     Dates: start: 20150206, end: 20150308
  41. FERROUS GLUCONATE [Concomitant]
     Active Substance: FERROUS GLUCONATE
     Dates: start: 20150206, end: 20150308
  42. DICLOXACILLIN [Concomitant]
     Active Substance: DICLOXACILLIN
     Dates: start: 20130215, end: 20130317
  43. GENTAMICIN. [Concomitant]
     Active Substance: GENTAMICIN
     Dates: start: 20150206, end: 20150308
  44. NITROFURANTOIN. [Concomitant]
     Active Substance: NITROFURANTOIN
     Dates: start: 20150813, end: 20150912
  45. PHENAZOPYRIDINE. [Concomitant]
     Active Substance: PHENAZOPYRIDINE
     Dates: start: 20150206, end: 20150308
  46. COLCHICINE. [Concomitant]
     Active Substance: COLCHICINE
     Dates: start: 20130215, end: 20130317
  47. ALLOPURINOL. [Concomitant]
     Active Substance: ALLOPURINOL
     Dates: start: 20160125, end: 20160224
  48. TAMSULOSIN [Concomitant]
     Active Substance: TAMSULOSIN
     Dates: start: 20150813, end: 20150912
  49. ISOSORBIDE DINITRATE. [Concomitant]
     Active Substance: ISOSORBIDE DINITRATE
     Dates: start: 20150813, end: 20150912
  50. HYDROCODONE [Concomitant]
     Active Substance: HYDROCODONE
     Dates: start: 20150206, end: 20150308
  51. HYDROCODONE [Concomitant]
     Active Substance: HYDROCODONE
     Dates: start: 20130215, end: 20130317
  52. PREDNISONE. [Concomitant]
     Active Substance: PREDNISONE
     Dates: start: 20150206, end: 20150308
  53. NITROFURANTOIN. [Concomitant]
     Active Substance: NITROFURANTOIN
     Dates: start: 20150206, end: 20150308
  54. ATORVASTATIN [Concomitant]
     Active Substance: ATORVASTATIN
     Dates: start: 20150206, end: 20150308
  55. PRILOSEC [Suspect]
     Active Substance: OMEPRAZOLE MAGNESIUM
     Indication: GASTROOESOPHAGEAL REFLUX DISEASE
     Dosage: GENERIC
     Route: 065
     Dates: end: 2017
  56. PRILOSEC [Suspect]
     Active Substance: OMEPRAZOLE MAGNESIUM
     Indication: GASTROOESOPHAGEAL REFLUX DISEASE
     Dosage: GENERIC, MR
     Route: 048
     Dates: start: 20161021, end: 20171022
  57. PRILOSEC OTC [Suspect]
     Active Substance: OMEPRAZOLE MAGNESIUM
     Indication: GASTROOESOPHAGEAL REFLUX DISEASE
     Route: 048
     Dates: start: 2011, end: 2012
  58. CIPROFLOXACIN. [Concomitant]
     Active Substance: CIPROFLOXACIN
     Dates: start: 20150813, end: 20150912
  59. LISINOPRIL. [Concomitant]
     Active Substance: LISINOPRIL
     Dates: start: 20121012, end: 20131013
  60. TUMS [Concomitant]
     Active Substance: CALCIUM CARBONATE
     Dates: start: 2009
  61. CARVEDILOL. [Concomitant]
     Active Substance: CARVEDILOL
     Dates: start: 20150813, end: 20150912
  62. ISOSORBIDE DINITRATE. [Concomitant]
     Active Substance: ISOSORBIDE DINITRATE
     Dates: start: 20130215, end: 20130317
  63. FERROUS GLUCONATE [Concomitant]
     Active Substance: FERROUS GLUCONATE
     Dates: start: 20150813, end: 20150912
  64. HYDROCODONE [Concomitant]
     Active Substance: HYDROCODONE
     Dates: start: 20150813, end: 20150912
  65. PREDNISONE. [Concomitant]
     Active Substance: PREDNISONE
     Dates: start: 20150813, end: 20150912
  66. PHENAZOPYRIDINE. [Concomitant]
     Active Substance: PHENAZOPYRIDINE
     Dates: start: 20130215, end: 20130317
  67. WARFARIN [Concomitant]
     Active Substance: WARFARIN
     Dates: start: 20130215, end: 20130317
  68. HYDRALAZINE [Concomitant]
     Active Substance: HYDRALAZINE HYDROCHLORIDE
     Indication: CARDIAC DISORDER
     Dates: start: 20121212, end: 20171022
  69. FEBUXOSTAT. [Concomitant]
     Active Substance: FEBUXOSTAT
     Dates: start: 20150813, end: 20150912
  70. POTASSIUM CHLORIDE. [Concomitant]
     Active Substance: POTASSIUM CHLORIDE
     Dates: start: 20130215, end: 20130317
  71. DICLOXACILLIN [Concomitant]
     Active Substance: DICLOXACILLIN
     Dates: start: 20150813, end: 20150912
  72. MITOMYCIN. [Concomitant]
     Active Substance: MITOMYCIN
     Dates: start: 20130215, end: 20130317
  73. PHENAZOPYRIDINE. [Concomitant]
     Active Substance: PHENAZOPYRIDINE
     Dates: start: 20150813, end: 20150912
  74. ATORVASTATIN [Concomitant]
     Active Substance: ATORVASTATIN
     Dates: start: 20130215, end: 20130317
  75. COLCHICINE. [Concomitant]
     Active Substance: COLCHICINE
     Dates: start: 20150206, end: 20150308

REACTIONS (3)
  - Renal failure [Unknown]
  - Acute kidney injury [Not Recovered/Not Resolved]
  - Chronic kidney disease [Not Recovered/Not Resolved]

NARRATIVE: CASE EVENT DATE: 20121212
